FAERS Safety Report 16364271 (Version 1)
Quarter: 2019Q2

REPORT INFORMATION
  Report Type: Spontaneous
  Country: US (occurrence: US)
  Receive Date: 20190528
  Receipt Date: 20190528
  Transmission Date: 20190711
  Serious: No
  Sender: FDA-Public Use
  Company Number: US-GREER LABORATORIES, INC.-2067527

PATIENT
  Age: 44 Year
  Sex: Female

DRUGS (16)
  1. RED MULBERRY POLLEN [Suspect]
     Active Substance: MORUS RUBRA POLLEN
     Route: 058
     Dates: start: 20180121
  2. POLLENS - TREES, CYPRESS, BALD TAXODIUM DISTICHUM [Suspect]
     Active Substance: TAXODIUM DISTICHUM POLLEN
     Route: 058
     Dates: start: 20180121
  3. GRASS SMUT MIX [Suspect]
     Active Substance: SPORISORIUM CRUENTUM\USTILAGO CYNODONTIS
     Route: 058
     Dates: start: 20180121
  4. POLLENS - WEEDS AND GARDEN PLANTS, DOG FENNEL EUPATORIUM CAPILLIFOLIUM [Suspect]
     Active Substance: EUPATORIUM CAPILLIFOLIUM POLLEN
     Route: 058
     Dates: start: 20180121
  5. STANDARDIZED MITE DERMATOPHAGOIDES PTERONYSSINUS [Suspect]
     Active Substance: DERMATOPHAGOIDES PTERONYSSINUS
     Route: 058
     Dates: start: 20180121
  6. POLLENS - WEEDS AND GARDEN PLANTS, RAGWEED, MIXED AMBROSIA [Suspect]
     Active Substance: AMBROSIA ARTEMISIIFOLIA POLLEN\AMBROSIA TRIFIDA POLLEN
     Route: 058
     Dates: start: 20180121
  7. ALLERGENIC EXTRACT- BLUEGRASS, KENTUCKY JUNE POA PRATENSIS [Suspect]
     Active Substance: POA PRATENSIS POLLEN
     Indication: MULTIPLE ALLERGIES
     Route: 058
     Dates: start: 20180121
  8. VIRGINIA LIVE OAK [Suspect]
     Active Substance: QUERCUS VIRGINIANA POLLEN
     Route: 058
     Dates: start: 20180121
  9. POLLENS - TREES, WALNUT, ENGLISH, JUGLANS REGIA [Suspect]
     Active Substance: JUGLANS REGIA POLLEN
     Route: 058
     Dates: start: 20180121
  10. STANDARDIZED MITE, DERMATOPHAGOIDES FARINAE [Suspect]
     Active Substance: DERMATOPHAGOIDES FARINAE
     Route: 058
     Dates: start: 20180121
  11. INSECTS WHOLE BODY COCKROACH, AMERICAN PERIPLANETA AMERICANA [Suspect]
     Active Substance: PERIPLANETA AMERICANA
     Route: 058
     Dates: start: 20180121
  12. POLLENS - TREES, ASH, WHITE FRAXINUS AMERICANA [Suspect]
     Active Substance: FRAXINUS AMERICANA POLLEN
     Route: 058
     Dates: start: 20180121
  13. POLLENS - TREES, GUM, SWEET LIQUIDAMBAR STYRACIFLUA [Suspect]
     Active Substance: LIQUIDAMBAR STYRACIFLUA POLLEN
     Route: 058
     Dates: start: 20180121
  14. POLLENS - TREES, WILLOW, BLACK SALIX NIGRA [Suspect]
     Active Substance: SALIX NIGRA POLLEN
     Route: 058
     Dates: start: 20180121
  15. WESTERN WATERHEMP POLLEN [Suspect]
     Active Substance: AMARANTHUS TUBERCULATUS POLLEN
     Route: 058
     Dates: start: 20180121
  16. POLLENS - WEEDS, KOCHIA SCOPARIA [Suspect]
     Active Substance: BASSIA SCOPARIA POLLEN
     Route: 058
     Dates: start: 20180121

REACTIONS (1)
  - Injection site reaction [Recovered/Resolved]

NARRATIVE: CASE EVENT DATE: 20190412
